FAERS Safety Report 6782694-9 (Version None)
Quarter: 2010Q2

REPORT INFORMATION
  Report Type: 
  Country: None (occurrence: None)
  Receive Date: 20100621
  Receipt Date: 20100515
  Transmission Date: 20101027
  Serious: Yes (Hospitalization, Other)
  Sender: FDA-Public Use
  Company Number: US-BAXTER-2008BH000757

PATIENT
  Age: 52 Year
  Sex: Male

DRUGS (3)
  1. HEPARIN SODIUM [Suspect]
     Indication: PERITONEAL DIALYSIS
     Route: 033
     Dates: start: 20071001, end: 20080129
  2. HEPARIN SODIUM [Suspect]
     Route: 033
     Dates: start: 20071001, end: 20080129
  3. INSULIN [Concomitant]
     Indication: DIABETES MELLITUS
     Route: 065

REACTIONS (5)
  - ABDOMINAL DISCOMFORT [None]
  - GASTROOESOPHAGEAL REFLUX DISEASE [None]
  - MALAISE [None]
  - NAUSEA [None]
  - VOMITING [None]
